FAERS Safety Report 6362213-1 (Version None)
Quarter: 2009Q3

REPORT INFORMATION
  Report Type: 
  Country: None (occurrence: None)
  Receive Date: 20090918
  Receipt Date: 20090728
  Transmission Date: 20100115
  Serious: No
  Sender: FDA-Public Use
  Company Number: US-ABBOTT-09P-163-0496336-00

PATIENT
  Sex: Male
  Weight: 28.602 kg

DRUGS (2)
  1. HUMIRA [Suspect]
     Indication: CROHN'S DISEASE
     Route: 058
     Dates: start: 20080504, end: 20090201
  2. HUMIRA [Suspect]
     Route: 058
     Dates: start: 20090501

REACTIONS (5)
  - FEELING HOT [None]
  - INJECTION SITE ERYTHEMA [None]
  - INJECTION SITE PAPULE [None]
  - INJECTION SITE SWELLING [None]
  - PRURITUS [None]
